FAERS Safety Report 7255918-1 (Version None)
Quarter: 2011Q1

REPORT INFORMATION
  Report Type: 
  Country: None (occurrence: None)
  Receive Date: 20110129
  Receipt Date: 20100526
  Transmission Date: 20110831
  Serious: No
  Sender: FDA-Public Use
  Company Number: US-ABBOTT-10P-163-0648475-00

PATIENT
  Sex: Female

DRUGS (4)
  1. HUMIRA [Suspect]
     Indication: CROHN'S DISEASE
     Dates: start: 20100510, end: 20100510
  2. HUMIRA [Suspect]
     Dates: start: 20100524, end: 20100524
  3. CITALOPRAM [Concomitant]
     Indication: CROHN'S DISEASE
  4. LIALDA [Concomitant]
     Indication: CROHN'S DISEASE

REACTIONS (4)
  - INJECTION SITE PAPULE [None]
  - INJECTION SITE PRURITUS [None]
  - INJECTION SITE ERYTHEMA [None]
  - CONDITION AGGRAVATED [None]
